FAERS Safety Report 4498805-4 (Version None)
Quarter: 2004Q3

REPORT INFORMATION
  Report Type: 
  Country: None (occurrence: None)
  Receive Date: 20040927
  Receipt Date: 20040617
  Transmission Date: 20050211
  Serious: No
  Sender: FDA-Public Use
  Company Number: USA040670415

PATIENT
  Age: 23 Year
  Sex: Female
  Weight: 70 kg

DRUGS (12)
  1. STRATTERA [Suspect]
     Indication: ATTENTION DEFICIT/HYPERACTIVITY DISORDER
     Dosage: 300 MG/1 AT BEDTIME
     Dates: start: 20040101
  2. TOPAMAX [Concomitant]
  3. LIMBITROL [Concomitant]
  4. KLONOPIN [Concomitant]
  5. CONTRACEPTIVE PILL (ORAL CONTRACEPTIVE NOS) [Concomitant]
  6. FOLIC ACID [Concomitant]
  7. VITAMIN B12 FOR INJECTION (CYANOCOBALAMIN) [Concomitant]
  8. ZYRTEC-D 12 HOUR [Concomitant]
  9. PARAFON FORTE [Concomitant]
  10. BEXTRA [Concomitant]
  11. METHADONE [Concomitant]
  12. MOBIC [Concomitant]

REACTIONS (1)
  - PRESCRIBED OVERDOSE [None]
